FAERS Safety Report 9028958 (Version 1)
Quarter: 2013Q1

REPORT INFORMATION
  Report Type: Spontaneous
  Country: FR (occurrence: FR)
  Receive Date: 20130124
  Receipt Date: 20130124
  Transmission Date: 20140127
  Serious: Yes (Hospitalization)
  Sender: FDA-Public Use
  Company Number: FR-SANOFI-AVENTIS-2013SA004303

PATIENT
  Age: 88 Year
  Sex: Female

DRUGS (7)
  1. LOVENOX [Suspect]
     Indication: PRODUCT USED FOR UNKNOWN INDICATION
     Dosage: START DATE09-NOV-2012 OR 10-NOV-2012? STOP DATE:BETWEEN 22-NOV-2012 AND 28-NOV-2012
     Route: 058
     Dates: start: 201211, end: 201211
  2. BACTRIM FORTE [Suspect]
     Indication: PRODUCT USED FOR UNKNOWN INDICATION
     Route: 048
     Dates: start: 20121112, end: 20121122
  3. LASILIX [Concomitant]
     Route: 048
     Dates: start: 2010
  4. DOLIPRANE [Concomitant]
     Dates: start: 2010
  5. FORLAX [Concomitant]
     Dates: start: 2010
  6. AMOXICILLIN/CLAVULANIC ACID [Concomitant]
     Dates: start: 201211
  7. GENTAMICIN [Concomitant]
     Dates: start: 201211

REACTIONS (2)
  - Pancytopenia [Recovered/Resolved]
  - Haematoma [Unknown]
